FAERS Safety Report 9991284 (Version 1)
Quarter: 2014Q1

REPORT INFORMATION
  Report Type: Report from Study
  Country: US (occurrence: US)
  Receive Date: 20140310
  Receipt Date: 20140310
  Transmission Date: 20141002
  Serious: No
  Sender: FDA-Public Use
  Company Number: US-ABBVIE-13P-163-1135828-00

PATIENT
  Sex: Female

DRUGS (4)
  1. HUMIRA [Suspect]
     Indication: CROHN^S DISEASE
     Dates: start: 20130312
  2. SYNTHROID [Concomitant]
     Indication: HYPOTHYROIDISM
  3. CYTOMEL [Concomitant]
     Indication: HYPOTHYROIDISM
  4. CARAFATE [Concomitant]
     Indication: ULCER

REACTIONS (5)
  - Oropharyngeal pain [Not Recovered/Not Resolved]
  - Rhinorrhoea [Not Recovered/Not Resolved]
  - Abdominal pain lower [Not Recovered/Not Resolved]
  - Sinus disorder [Not Recovered/Not Resolved]
  - Headache [Not Recovered/Not Resolved]
